FAERS Safety Report 8146929-2 (Version None)
Quarter: 2012Q1

REPORT INFORMATION
  Report Type: 
  Country: None (occurrence: None)
  Receive Date: 20120217
  Receipt Date: 20120208
  Transmission Date: 20120608
  Serious: Yes (Other)
  Sender: FDA-Public Use
  Company Number: US-ABBOTT-12P-163-0903085-00

PATIENT
  Sex: Male
  Weight: 104.42 kg

DRUGS (5)
  1. FOLIC ACID [Concomitant]
     Indication: VITAMIN SUPPLEMENTATION
  2. NAPROXEN [Concomitant]
     Indication: PRODUCT USED FOR UNKNOWN INDICATION
  3. LEUFLONIMIDE [Concomitant]
     Indication: ANKYLOSING SPONDYLITIS
  4. HUMIRA [Suspect]
     Indication: ANKYLOSING SPONDYLITIS
     Dates: start: 20101001, end: 20111001
  5. METHOTREXATE [Concomitant]
     Indication: ANKYLOSING SPONDYLITIS

REACTIONS (7)
  - AMNESIA [None]
  - ANKYLOSING SPONDYLITIS [None]
  - GLIOBLASTOMA [None]
  - DRUG INEFFECTIVE [None]
  - NAUSEA [None]
  - FATIGUE [None]
  - PYREXIA [None]
